FAERS Safety Report 21391051 (Version 1)
Quarter: 2022Q3

REPORT INFORMATION
  Report Type: Spontaneous
  Country: US (occurrence: None)
  Receive Date: 20220928
  Receipt Date: 20220928
  Transmission Date: 20221027
  Serious: No
  Sender: FDA-Public Use
  Company Number: None

PATIENT
  Age: 71 Year
  Sex: Male
  Weight: 80.74 kg

DRUGS (4)
  1. DOFETILIDE [Suspect]
     Active Substance: DOFETILIDE
     Indication: Atrial fibrillation
     Dosage: FREQUENCY : TWICE A DAY;?
     Route: 048
     Dates: start: 20220803, end: 20220805
  2. DOFETILIDE [Suspect]
     Active Substance: DOFETILIDE
     Indication: Cardiac failure congestive
  3. IVABRADINE [Suspect]
     Active Substance: IVABRADINE
     Indication: Atrial fibrillation
     Dosage: FREQUENCY : TWICE A DAY;?
     Route: 048
     Dates: start: 20220803, end: 20220803
  4. IVABRADINE [Suspect]
     Active Substance: IVABRADINE
     Indication: Cardiac failure congestive

REACTIONS (3)
  - Palpitations [None]
  - Tachycardia [None]
  - Pacemaker generated rhythm [None]

NARRATIVE: CASE EVENT DATE: 20220805
